FAERS Safety Report 5647708-8 (Version None)
Quarter: 2008Q1

REPORT INFORMATION
  Report Type: 
  Country: None (occurrence: None)
  Receive Date: 20080303
  Receipt Date: 20080222
  Transmission Date: 20080703
  Serious: Yes (Congenital Anomaly)
  Sender: FDA-Public Use
  Company Number: US-GILEAD-2008-0014836

PATIENT
  Sex: Male
  Weight: 2.134 kg

DRUGS (5)
  1. ATRIPLA [Suspect]
     Indication: DRUG EXPOSURE DURING PREGNANCY
     Dosage: 600/200 MILLIGRAM
     Route: 064
     Dates: start: 20061229, end: 20070529
  2. TRUVADA [Suspect]
     Indication: DRUG EXPOSURE DURING PREGNANCY
     Dosage: 200/300 MILLIGRAM
     Route: 064
     Dates: start: 20070529, end: 20071022
  3. NEVIRAPINE [Suspect]
     Indication: DRUG EXPOSURE DURING PREGNANCY
     Route: 064
     Dates: start: 20070529, end: 20071022
  4. KALETRA [Suspect]
     Indication: DRUG EXPOSURE DURING PREGNANCY
     Dosage: 800/200 MILLIGRAM
     Route: 064
     Dates: start: 20071023, end: 20071205
  5. TRIZAVIR [Suspect]
     Indication: DRUG EXPOSURE DURING PREGNANCY
     Dosage: 300/150/300 MILLIGRAM
     Route: 064
     Dates: start: 20071023, end: 20071205

REACTIONS (1)
  - HIP DYSPLASIA [None]
